FAERS Safety Report 6406630-X (Version None)
Quarter: 2009Q4

REPORT INFORMATION
  Report Type: 
  Country: None (occurrence: None)
  Receive Date: 20091014
  Receipt Date: 20090923
  Transmission Date: 20100525
  Serious: Yes (Other)
  Sender: FDA-Public Use
  Company Number: AUR-APL-2009-00709

PATIENT
  Age: 54 Year
  Sex: Male

DRUGS (12)
  1. DIDANOSINE [Suspect]
     Indication: HIV INFECTION
  2. STAVUDINE [Suspect]
     Indication: HIV INFECTION
  3. ZIDOVUDINE [Suspect]
     Indication: HIV INFECTION
  4. LAMIVUDINE [Suspect]
     Indication: HIV INFECTION
  5. INDINAVIR [Suspect]
     Indication: HIV INFECTION
  6. ABACAVIR [Suspect]
     Indication: HIV INFECTION
  7. NEVIRAPINE [Suspect]
     Indication: HIV INFECTION
  8. ENFUVIRTIDE [Suspect]
     Indication: HIV INFECTION
  9. TDF [Suspect]
     Indication: HIV INFECTION
  10. LOPINAVIR AND RITONAVIR [Suspect]
  11. ATAZABAVUR [Suspect]
     Indication: HIV INFECTION
  12. SAQUINAVIR [Suspect]
     Indication: HIV INFECTION

REACTIONS (7)
  - DIPLOPIA [None]
  - DRUG EFFECT DECREASED [None]
  - DYSPHAGIA [None]
  - EYELID PTOSIS [None]
  - LIPODYSTROPHY ACQUIRED [None]
  - MITOCHONDRIAL TOXICITY [None]
  - OPHTHALMOPLEGIA [None]
